FAERS Safety Report 14790612 (Version 1)
Quarter: 2018Q2

REPORT INFORMATION
  Report Type: Spontaneous
  Country: DK (occurrence: DK)
  Receive Date: 20180423
  Receipt Date: 20180423
  Transmission Date: 20180711
  Serious: Yes (Death, Hospitalization)
  Sender: FDA-Public Use
  Company Number: DK-ROCHE-2108543

PATIENT
  Age: 79 Year
  Sex: Female

DRUGS (1)
  1. ACTILYSE [Suspect]
     Active Substance: ALTEPLASE
     Indication: THROMBOLYSIS
     Route: 065

REACTIONS (4)
  - Loss of consciousness [Unknown]
  - Condition aggravated [Fatal]
  - Cerebral haemorrhage [Fatal]
  - Post procedural complication [Unknown]

NARRATIVE: CASE EVENT DATE: 20140626
